FAERS Safety Report 20168621 (Version 1)
Quarter: 2021Q4

REPORT INFORMATION
  Report Type: Spontaneous
  Country: US (occurrence: US)
  Receive Date: 20211210
  Receipt Date: 20211210
  Transmission Date: 20220303
  Serious: Yes (Life-Threatening, Hospitalization, Other)
  Sender: FDA-Public Use
  Company Number: US-JNJFOC-20211203616

PATIENT
  Age: 32 Year
  Sex: Female
  Weight: 47.7 kg

DRUGS (3)
  1. TYLENOL EXTRA STRENGTH [Suspect]
     Active Substance: ACETAMINOPHEN
     Indication: Fibromyalgia
     Dosage: ACETAMINOPHEN 10 TABLETS TOTAL DOSE OF ACETAMINOPHEN 5000 MG FOR APPROXIMATELY 36 HOURS
     Route: 048
     Dates: end: 20010618
  2. VICODIN [Suspect]
     Active Substance: ACETAMINOPHEN\HYDROCODONE BITARTRATE
     Indication: Fibromyalgia
     Dosage: (20 TABLETS) ACETAMINOPHEN 500 MG/ HYDROCODONE BITARTRATE 5 MG AT AN UNKNOWN DOSE TOTAL INGESTED DOS
     Route: 048
     Dates: end: 20010618
  3. XANAX [Concomitant]
     Active Substance: ALPRAZOLAM
     Indication: Product used for unknown indication
     Route: 065
     Dates: end: 20010604

REACTIONS (10)
  - Acute hepatic failure [Recovered/Resolved]
  - Acute kidney injury [Recovered/Resolved]
  - Acute myocardial infarction [Recovered/Resolved]
  - Multiple organ dysfunction syndrome [Recovered/Resolved]
  - Bradyarrhythmia [Recovered/Resolved]
  - Acute respiratory distress syndrome [Recovered/Resolved]
  - Septic embolus [Recovered/Resolved]
  - Staphylococcal infection [Recovered/Resolved]
  - Accidental overdose [Recovered/Resolved]
  - Product administration error [Recovered/Resolved]

NARRATIVE: CASE EVENT DATE: 20010620
